FAERS Safety Report 9517572 (Version 2)
Quarter: 2013Q4

REPORT INFORMATION
  Report Type: Spontaneous
  Country: US (occurrence: US)
  Receive Date: 20130911
  Receipt Date: 20131007
  Transmission Date: 20140711
  Serious: Yes (Hospitalization)
  Sender: FDA-Public Use
  Company Number: US-MERCK-1309USA002525

PATIENT
  Age: 27 Year
  Sex: Female

DRUGS (1)
  1. SAPHRIS [Suspect]
     Indication: BIPOLAR DISORDER
     Dosage: 5 MG ONCE DAILY AT NIGHT TIME
     Route: 060
     Dates: start: 20130827, end: 20130829

REACTIONS (3)
  - Oedema peripheral [Recovering/Resolving]
  - Inappropriate schedule of drug administration [Unknown]
  - Underdose [Unknown]
